FAERS Safety Report 5409435-1 (Version None)
Quarter: 2007Q3

REPORT INFORMATION
  Report Type: 
  Country: None (occurrence: None)
  Receive Date: 20070807
  Receipt Date: 20070807
  Transmission Date: 20080115
  Serious: Yes (Hospitalization)
  Sender: FDA-Public Use
  Company Number: None

PATIENT
  Age: 80 Year
  Sex: Male
  Weight: 77.1115 kg

DRUGS (2)
  1. NADOLOL [Suspect]
     Indication: BLOOD PRESSURE
     Dosage: 1 TABLET DAILY PO
     Route: 048
     Dates: start: 20070425, end: 20070608
  2. VERAPAMIL [Suspect]
     Indication: BLOOD PRESSURE
     Dosage: 1 TABLET DAILY PO
     Route: 048
     Dates: start: 20040101, end: 20070806

REACTIONS (4)
  - ABASIA [None]
  - FALL [None]
  - HYPERTENSION [None]
  - SINUS BRADYCARDIA [None]
